FAERS Safety Report 11919018 (Version 1)
Quarter: 2016Q1

REPORT INFORMATION
  Report Type: Spontaneous
  Country: US (occurrence: None)
  Receive Date: 20160114
  Receipt Date: 20160114
  Transmission Date: 20160526
  Serious: No
  Sender: FDA-Public Use
  Company Number: None

PATIENT
  Sex: Male
  Weight: 70.31 kg

DRUGS (1)
  1. FINASTERIDE. [Suspect]
     Active Substance: FINASTERIDE
     Indication: NEOPLASM MALIGNANT
     Route: 048
     Dates: start: 20151022, end: 20151218

REACTIONS (5)
  - Breast pain [None]
  - Testicular pain [None]
  - Breast enlargement [None]
  - Nipple pain [None]
  - Nipple swelling [None]
